FAERS Safety Report 10061764 (Version 1)
Quarter: 2014Q2

REPORT INFORMATION
  Report Type: Spontaneous
  Country: US (occurrence: None)
  Receive Date: 20140403
  Receipt Date: 20140403
  Transmission Date: 20141212
  Serious: Yes (Hospitalization)
  Sender: FDA-Public Use
  Company Number: UTC-045343

PATIENT
  Age: 72 Year
  Sex: Female
  Weight: 81.64 kg

DRUGS (4)
  1. REMODULIN [Suspect]
     Indication: PULMONARY ARTERIAL HYPERTENSION
     Dosage: 22.68 UG/KG (0.01575 UG/KG, 1 IN 1 MIN),SUBCUTANEOUS
     Route: 058
     Dates: start: 20131018
  2. TYVASO [Suspect]
     Indication: PULMONARY ARTERIAL HYPERTENSION
     Route: 055
  3. TRACLEER (BOSENTAN) [Concomitant]
  4. ADCIRCA (TADALAFIL) [Concomitant]

REACTIONS (1)
  - Pneumonia [None]
